FAERS Safety Report 9468634 (Version 2)
Quarter: 2013Q4

REPORT INFORMATION
  Report Type: Spontaneous
  Country: IT (occurrence: IT)
  Receive Date: 20130821
  Receipt Date: 20131108
  Transmission Date: 20140711
  Serious: Yes (Hospitalization)
  Sender: FDA-Public Use
  Company Number: IT-BRISTOL-MYERS SQUIBB COMPANY-19200351

PATIENT
  Age: 41 Year
  Sex: Male

DRUGS (5)
  1. COUMADIN TABS 5 MG [Suspect]
     Indication: DEEP VEIN THROMBOSIS
     Dosage: 1DF: 1DOSAGE UNIT
     Route: 048
     Dates: start: 20130701, end: 20130809
  2. TRAMADOL HCL + ACETAMINOPHEN [Interacting]
     Indication: BACK PAIN
     Route: 048
     Dates: start: 20130801, end: 20130808
  3. SPIRIVA [Concomitant]
  4. SERETIDE [Concomitant]
  5. PANTORC [Concomitant]

REACTIONS (3)
  - Haemoptysis [Recovering/Resolving]
  - International normalised ratio increased [Recovering/Resolving]
  - Drug interaction [Unknown]
